FAERS Safety Report 23559124 (Version 3)
Quarter: 2024Q1

REPORT INFORMATION
  Report Type: Spontaneous
  Country: US (occurrence: US)
  Receive Date: 20240223
  Receipt Date: 20240316
  Transmission Date: 20240410
  Serious: Yes (Other)
  Sender: FDA-Public Use
  Company Number: US-UNITED THERAPEUTICS-UNT-2023-036330

PATIENT
  Age: 55 Year
  Sex: Female
  Weight: 102.04 kg

DRUGS (9)
  1. TYVASO DPI [Suspect]
     Active Substance: TREPROSTINIL
     Indication: Pulmonary arterial hypertension
     Dosage: 64 ?G, QID
     Dates: start: 20230711
  2. TYVASO DPI [Suspect]
     Active Substance: TREPROSTINIL
     Dosage: UNK
     Dates: start: 202207
  3. TYVASO DPI [Suspect]
     Active Substance: TREPROSTINIL
     Indication: Pulmonary arterial hypertension
     Dosage: UNK
  4. LASIX [Concomitant]
     Active Substance: FUROSEMIDE
     Indication: Product used for unknown indication
     Dosage: 20 MG, BID
     Route: 048
     Dates: start: 20230323
  5. TYLENOL [Concomitant]
     Active Substance: ACETAMINOPHEN
     Indication: Pain
     Dosage: 650 MG, Q4H (AS NEEDED)
     Route: 048
     Dates: start: 20220624
  6. ADEMPAS [Concomitant]
     Active Substance: RIOCIGUAT
     Indication: Product used for unknown indication
     Dosage: 2.5 MG, Q8H
     Route: 048
     Dates: start: 20220823
  7. OXYGEN [Concomitant]
     Active Substance: OXYGEN
     Indication: Product used for unknown indication
     Dosage: UNK
     Route: 065
  8. ASPIRIN [Concomitant]
     Active Substance: ASPIRIN
     Indication: Product used for unknown indication
     Dosage: 81 MG, QD
     Route: 048
     Dates: start: 20220617, end: 20240213
  9. DELTASONE [Concomitant]
     Active Substance: PREDNISONE
     Indication: Product used for unknown indication
     Dosage: 20 MG, BID
     Route: 048
     Dates: start: 20231219

REACTIONS (11)
  - Non-small cell lung cancer [Not Recovered/Not Resolved]
  - Acute left ventricular failure [Unknown]
  - Hypoxia [Unknown]
  - Pulmonary fibrosis [Unknown]
  - Dyspnoea exertional [Unknown]
  - Oedema peripheral [Recovered/Resolved]
  - Antisynthetase syndrome [Unknown]
  - Oxygen saturation decreased [Unknown]
  - Chest pain [Recovering/Resolving]
  - Dehydration [Unknown]
  - Wheezing [Unknown]

NARRATIVE: CASE EVENT DATE: 20230307
